FAERS Safety Report 26125146 (Version 1)
Quarter: 2025Q4

REPORT INFORMATION
  Report Type: Report from Study
  Country: IL (occurrence: IL)
  Receive Date: 20251205
  Receipt Date: 20251205
  Transmission Date: 20260117
  Serious: Yes (Death, Other)
  Sender: ROCHE
  Company Number: IL-ROCHE-10000449738

PATIENT

DRUGS (12)
  1. RITUXIMAB [Suspect]
     Active Substance: RITUXIMAB
     Indication: Inflammation
     Route: 065
  2. MYCOPHENOLATE MOFETIL [Suspect]
     Active Substance: MYCOPHENOLATE MOFETIL
     Indication: Immunosuppression
     Route: 065
  3. PREDNISONE [Suspect]
     Active Substance: PREDNISONE
     Indication: Immunosuppression
     Route: 065
  4. INFLIXIMAB [Suspect]
     Active Substance: INFLIXIMAB
     Indication: Inflammation
     Route: 065
  5. ADALIMUMAB [Suspect]
     Active Substance: ADALIMUMAB
     Indication: Inflammation
     Route: 065
  6. ETANERCEPT [Suspect]
     Active Substance: ETANERCEPT
     Indication: Inflammation
     Route: 065
  7. ANAKINRA [Suspect]
     Active Substance: ANAKINRA
     Indication: Inflammation
     Route: 065
  8. CANAKINUMAB [Suspect]
     Active Substance: CANAKINUMAB
     Indication: Inflammation
     Route: 065
  9. GOLIMUMAB [Suspect]
     Active Substance: GOLIMUMAB
     Indication: Inflammation
     Route: 065
  10. USTEKINUMAB [Suspect]
     Active Substance: USTEKINUMAB
     Indication: Inflammation
     Route: 065
  11. RISANKIZUMAB [Suspect]
     Active Substance: RISANKIZUMAB
     Indication: Inflammation
     Route: 065
  12. VEDOLIZUMAB [Suspect]
     Active Substance: VEDOLIZUMAB
     Indication: Inflammation
     Route: 065

REACTIONS (10)
  - Urinary tract infection [Unknown]
  - Respiratory tract infection [Unknown]
  - COVID-19 [Fatal]
  - Gastroenteritis [Unknown]
  - Cellulitis [Unknown]
  - Basal cell carcinoma [Unknown]
  - Squamous cell carcinoma [Unknown]
  - Prostate cancer [Unknown]
  - Sepsis [Fatal]
  - Drug ineffective [Unknown]
